FAERS Safety Report 9410159 (Version 2)
Quarter: 2013Q4

REPORT INFORMATION
  Report Type: Spontaneous
  Country: JP (occurrence: JP)
  Receive Date: 20130719
  Receipt Date: 20131004
  Transmission Date: 20140711
  Serious: Yes (Hospitalization)
  Sender: FDA-Public Use
  Company Number: JP-009507513-1307JPN006711

PATIENT
  Sex: Female

DRUGS (3)
  1. EMEND [Suspect]
     Indication: PROPHYLAXIS OF NAUSEA AND VOMITING
     Dosage: 80MG, 125MG DAILY
     Route: 048
  2. ORGADRONE (DEXAMETHASONE SODIUM PHOSPHATE) [Concomitant]
  3. ALOXI [Concomitant]

REACTIONS (1)
  - Altered state of consciousness [Recovered/Resolved]
